FAERS Safety Report 9413670 (Version 1)
Quarter: 2013Q3

REPORT INFORMATION
  Report Type: Spontaneous
  Country: CN (occurrence: CN)
  Receive Date: 20130722
  Receipt Date: 20130722
  Transmission Date: 20140515
  Serious: Yes (Death, Hospitalization, Other)
  Sender: FDA-Public Use
  Company Number: CN-BAXTER-2013BAX027850

PATIENT
  Age: 68 Year
  Sex: Male

DRUGS (1)
  1. LOW CALCIUM PERITONEAL DIALYSIS SOLUTION ( LACTATE- G1.5%) [Suspect]
     Indication: AZOTAEMIA
     Route: 033
     Dates: start: 201210, end: 20130613

REACTIONS (5)
  - Death [Fatal]
  - Peritonitis bacterial [Unknown]
  - Fungal peritonitis [Unknown]
  - Malaise [Unknown]
  - Peritoneal cloudy effluent [Unknown]
